FAERS Safety Report 7731050-5 (Version None)
Quarter: 2011Q3

REPORT INFORMATION
  Report Type: 
  Country: None (occurrence: None)
  Receive Date: 20110906
  Receipt Date: 20110906
  Transmission Date: 20111222
  Serious: Yes (Life-Threatening)
  Sender: FDA-Public Use
  Company Number: None

PATIENT
  Age: 61 Year
  Sex: Female
  Weight: 210.2 kg

DRUGS (2)
  1. CHERRY SYRUP [Suspect]
     Indication: CLOSTRIDIAL INFECTION
     Dosage: 125 MG VANCO SYRUP
     Route: 048
     Dates: start: 20110831, end: 20110831
  2. VANCOMYCIN [Concomitant]

REACTIONS (3)
  - DYSPNOEA [None]
  - FLUSHING [None]
  - ANGIOEDEMA [None]
